FAERS Safety Report 4800527-4 (Version None)
Quarter: 2005Q4

REPORT INFORMATION
  Report Type: 
  Country: None (occurrence: None)
  Receive Date: 20051005
  Receipt Date: 20050902
  Transmission Date: 20060501
  Serious: Yes (Death)
  Sender: FDA-Public Use
  Company Number: 2005BH001514

PATIENT
  Age: 80 Year
  Sex: Male
  Weight: 65 kg

DRUGS (4)
  1. HEPARIN SODIUM [Suspect]
     Indication: DIALYSIS
     Dosage: 15000 UNITS; IV
     Route: 042
     Dates: start: 20050211, end: 20050211
  2. HEPARIN SODIUM [Suspect]
     Indication: THROMBOSIS PROPHYLAXIS
     Dosage: 15000 UNITS; IV
     Route: 042
     Dates: start: 20050211, end: 20050211
  3. CARVEDILOL [Concomitant]
  4. HEPARIN [Concomitant]

REACTIONS (3)
  - CARDIAC ARREST [None]
  - HAEMORRHAGE [None]
  - HEPARIN-INDUCED THROMBOCYTOPENIA [None]
